FAERS Safety Report 25287298 (Version 2)
Quarter: 2025Q2

REPORT INFORMATION
  Report Type: Spontaneous
  Country: US (occurrence: US)
  Receive Date: 20250509
  Receipt Date: 20250521
  Transmission Date: 20250717
  Serious: No
  Sender: AMGEN
  Company Number: US-AMGEN-USASP2025089683

PATIENT
  Sex: Female

DRUGS (1)
  1. CORLANOR [Suspect]
     Active Substance: IVABRADINE HYDROCHLORIDE
     Indication: Product used for unknown indication
     Dosage: 7.5 MILLIGRAM, BID (TWO 7.5MG PILLS/DAY/ SHE IS CUTTING DOWN TO ONE PILL AND ONE HALF A DAY))
     Route: 065

REACTIONS (3)
  - Heart rate increased [Unknown]
  - Therapy interrupted [Unknown]
  - Intentional product misuse [Unknown]
